FAERS Safety Report 9549975 (Version 1)
Quarter: 2013Q3

REPORT INFORMATION
  Report Type: Spontaneous
  Country: US (occurrence: US)
  Receive Date: 20130924
  Receipt Date: 20130924
  Transmission Date: 20140515
  Serious: Yes (Other)
  Sender: FDA-Public Use
  Company Number: US-009507513-1301USA002730

PATIENT
  Age: 70 Year
  Sex: Female

DRUGS (4)
  1. SINGULAIR [Suspect]
     Route: 048
  2. RELENZA [Suspect]
  3. TULOBUTEROL [Concomitant]
  4. ALVESCO [Concomitant]

REACTIONS (2)
  - Somnolence [Unknown]
  - Hallucination [Unknown]
